FAERS Safety Report 21573347 (Version 1)
Quarter: 2022Q4

REPORT INFORMATION
  Report Type: Spontaneous
  Country: US (occurrence: None)
  Receive Date: 20221109
  Receipt Date: 20221109
  Transmission Date: 20230112
  Serious: Yes (Other)
  Sender: FDA-Public Use
  Company Number: None

PATIENT
  Age: 64 Year
  Sex: Female
  Weight: 70.65 kg

DRUGS (2)
  1. CALQUENCE [Suspect]
     Active Substance: ACALABRUTINIB
     Indication: Chronic lymphocytic leukaemia
     Dosage: FREQUENCY : TWICE A DAY;?
     Route: 048
     Dates: start: 20220819, end: 20221030
  2. OLMESARTAN [Concomitant]
     Active Substance: OLMESARTAN
     Dates: start: 20200210, end: 20221005

REACTIONS (11)
  - Headache [None]
  - Dizziness postural [None]
  - Fatigue [None]
  - Eye pain [None]
  - Hypotension [None]
  - Nausea [None]
  - Decreased appetite [None]
  - Myalgia [None]
  - Arthralgia [None]
  - Anaemia [None]
  - Drug intolerance [None]

NARRATIVE: CASE EVENT DATE: 20221030
